FAERS Safety Report 25183205 (Version 1)
Quarter: 2025Q2

REPORT INFORMATION
  Report Type: Spontaneous
  Country: US (occurrence: US)
  Receive Date: 20250410
  Receipt Date: 20250410
  Transmission Date: 20250717
  Serious: No
  Sender: AMGEN
  Company Number: US-AMGEN-USASL2025068658

PATIENT
  Age: 81 Year
  Sex: Female

DRUGS (3)
  1. PREDNISONE [Suspect]
     Active Substance: PREDNISONE
     Indication: Psoriatic arthropathy
     Route: 048
  2. DOVONEX [Concomitant]
     Active Substance: CALCIPOTRIENE
  3. METHOTREXATE [Concomitant]
     Active Substance: METHOTREXATE
     Indication: Psoriasis

REACTIONS (7)
  - Alopecia [Unknown]
  - Seborrhoeic keratosis [Unknown]
  - Arthralgia [Unknown]
  - Rash [Unknown]
  - Anxiety [Unknown]
  - Cough [Unknown]
  - Fatigue [Unknown]
